FAERS Safety Report 10065137 (Version 1)
Quarter: 2014Q1

REPORT INFORMATION
  Report Type: Spontaneous
  Country: US (occurrence: None)
  Receive Date: 20140328
  Receipt Date: 20140328
  Transmission Date: 20141002
  Serious: No
  Sender: FDA-Public Use
  Company Number: 1000054689

PATIENT
  Age: 84 Year
  Sex: Female

DRUGS (3)
  1. LINZESS (LINACLOTIDE) (145 MICROGRAM, CAPSULES) [Suspect]
     Indication: CONSTIPATION
     Dates: start: 20140221
  2. PREVACID (LANSOPRAZOLE) (LANSOPRAZOLE) [Concomitant]
  3. LORAZEPAM (LORAZEPAM) (LORAZEPAM) [Concomitant]

REACTIONS (1)
  - Abdominal pain [None]
